FAERS Safety Report 19125121 (Version 1)
Quarter: 2021Q2

REPORT INFORMATION
  Report Type: Report from Study
  Country: TR (occurrence: TR)
  Receive Date: 20210412
  Receipt Date: 20210412
  Transmission Date: 20210717
  Serious: Yes (Other)
  Sender: FDA-Public Use
  Company Number: TR-GLAXOSMITHKLINE-TR2021GSK078650

PATIENT

DRUGS (1)
  1. PROPAFENONE HYDROCHLORIDE. [Suspect]
     Active Substance: PROPAFENONE HYDROCHLORIDE
     Indication: ATRIAL FIBRILLATION
     Dosage: 150 MG, TID

REACTIONS (1)
  - Ventricular tachycardia [Unknown]
